FAERS Safety Report 8283176-8 (Version None)
Quarter: 2012Q2

REPORT INFORMATION
  Report Type: 
  Country: None (occurrence: None)
  Receive Date: 20120413
  Receipt Date: 20120406
  Transmission Date: 20120825
  Serious: Yes (Other)
  Sender: FDA-Public Use
  Company Number: US-JNJFOC-20120403515

PATIENT
  Sex: Male
  Weight: 49.9 kg

DRUGS (6)
  1. RISPERIDONE [Suspect]
     Route: 048
     Dates: start: 20120313, end: 20120405
  2. CORTEF [Concomitant]
     Indication: ADRENAL INSUFFICIENCY
     Route: 048
     Dates: start: 20010101
  3. RISPERIDONE [Suspect]
     Route: 048
     Dates: end: 20120313
  4. RISPERIDONE [Suspect]
     Indication: PRODUCT USED FOR UNKNOWN INDICATION
     Route: 048
     Dates: start: 20120405
  5. RISPERIDONE [Suspect]
     Route: 048
     Dates: start: 20110901
  6. SYNTHROID [Concomitant]
     Indication: HYPOTHYROIDISM
     Route: 048
     Dates: start: 20010101

REACTIONS (8)
  - INJURY [None]
  - ABNORMAL BEHAVIOUR [None]
  - PRODUCT PHYSICAL ISSUE [None]
  - WRONG TECHNIQUE IN DRUG USAGE PROCESS [None]
  - FALL [None]
  - EXCORIATION [None]
  - POOR QUALITY DRUG ADMINISTERED [None]
  - ANXIETY [None]
